FAERS Safety Report 25839285 (Version 6)
Quarter: 2025Q4

REPORT INFORMATION
  Report Type: Report from Study
  Country: CA (occurrence: CA)
  Receive Date: 20250924
  Receipt Date: 20251231
  Transmission Date: 20260117
  Serious: Yes (Other)
  Sender: CELLTRION
  Company Number: CA-CELLTRION INC.-2025CA011136

PATIENT

DRUGS (18)
  1. USTEKINUMAB [Suspect]
     Active Substance: USTEKINUMAB
     Indication: Crohn^s disease
     Dosage: 90 MG, EVERY 4 WEEKS (MAINTENANCE - 90 MG - SC (SUBCUTANEOUS) EVERY 4 WEEKS)
     Route: 058
     Dates: start: 20250424
  2. USTEKINUMAB [Suspect]
     Active Substance: USTEKINUMAB
     Dosage: 90 MG, EVERY 4 WEEKS (MAINTENANCE - 90 MG - SC (SUBCUTANEOUS) EVERY 4 WEEKS)
     Route: 058
     Dates: start: 20250424
  3. USTEKINUMAB [Suspect]
     Active Substance: USTEKINUMAB
     Dosage: MAINTENANCE - 90 MG - EVERY 4 WEEKS
     Route: 058
     Dates: start: 20250424
  4. USTEKINUMAB [Suspect]
     Active Substance: USTEKINUMAB
     Dosage: 90 MG Q4 WEEKS
     Route: 058
     Dates: start: 20250424
  5. USTEKINUMAB [Suspect]
     Active Substance: USTEKINUMAB
     Dosage: MAINTENANCE - 90 MG - EVERY 4 WEEKS
     Route: 058
     Dates: start: 20250424
  6. USTEKINUMAB [Suspect]
     Active Substance: USTEKINUMAB
     Dosage: LOADING DOSE-520MG OTHER
     Route: 058
     Dates: start: 20250424
  7. USTEKINUMAB [Suspect]
     Active Substance: USTEKINUMAB
     Dosage: MAINTENANCE - 90 MG - EVERY 4 WEEKS
     Route: 058
     Dates: start: 20250424
  8. ALLOPURINOL [Concomitant]
     Active Substance: ALLOPURINOL
     Indication: Product used for unknown indication
     Dosage: UNK
     Route: 065
  9. DEXILANT [Concomitant]
     Active Substance: DEXLANSOPRAZOLE
     Indication: Product used for unknown indication
     Dosage: UNK
     Route: 048
  10. RAMIPRIL [Concomitant]
     Active Substance: RAMIPRIL
     Indication: Product used for unknown indication
     Dosage: UNK
     Route: 065
  11. AMLODIPINE [Concomitant]
     Active Substance: AMLODIPINE BESYLATE
     Indication: Product used for unknown indication
     Dosage: UNK
     Route: 065
  12. BUDESONIDE [Concomitant]
     Active Substance: BUDESONIDE
     Indication: Product used for unknown indication
     Route: 065
  13. PRAVASTATIN [Concomitant]
     Active Substance: PRAVASTATIN
     Indication: Product used for unknown indication
     Route: 065
  14. POTASSIUM [Concomitant]
     Active Substance: POTASSIUM
     Indication: Product used for unknown indication
     Route: 065
  15. MESALAMINE [Concomitant]
     Active Substance: MESALAMINE
     Indication: Product used for unknown indication
     Route: 065
  16. DEXLANSOPRAZOLE [Concomitant]
     Active Substance: DEXLANSOPRAZOLE
     Indication: Product used for unknown indication
     Dosage: UNK
     Route: 048
  17. POTASSIUM CHLORIDE [Concomitant]
     Active Substance: POTASSIUM CHLORIDE
     Indication: Product used for unknown indication
     Dosage: UNK
     Route: 065
  18. BUDESONIDE [Concomitant]
     Active Substance: BUDESONIDE

REACTIONS (16)
  - Gastrooesophageal reflux disease [Recovered/Resolved]
  - Pain [Unknown]
  - Sneezing [Recovered/Resolved]
  - Cough [Unknown]
  - Cough [Recovering/Resolving]
  - Flatulence [Unknown]
  - Oesophageal spasm [Unknown]
  - Nasopharyngitis [Unknown]
  - Oropharyngeal pain [Recovered/Resolved]
  - Drug ineffective [Not Recovered/Not Resolved]
  - Intentional product use issue [Unknown]
  - Therapy interrupted [Unknown]
  - Therapeutic response changed [Unknown]
  - Drug effect less than expected [Unknown]
  - Loss of therapeutic response [Unknown]
  - Overdose [Unknown]

NARRATIVE: CASE EVENT DATE: 20250101
